FAERS Safety Report 13005223 (Version 1)
Quarter: 2016Q4

REPORT INFORMATION
  Report Type: Report from Study
  Country: US (occurrence: US)
  Receive Date: 20161207
  Receipt Date: 20161207
  Transmission Date: 20170207
  Serious: No
  Sender: FDA-Public Use
  Company Number: PHEH2016US031722

PATIENT
  Sex: Male
  Weight: 63.8 kg

DRUGS (1)
  1. JADENU [Suspect]
     Active Substance: DEFERASIROX
     Indication: SICKLE CELL ANAEMIA
     Dosage: 720 MG, QD
     Route: 048
     Dates: start: 20160801, end: 20160929

REACTIONS (1)
  - No adverse event [Unknown]
